FAERS Safety Report 9499063 (Version 1)
Quarter: 2013Q3

REPORT INFORMATION
  Report Type: Spontaneous
  Country: US (occurrence: US)
  Receive Date: 20130904
  Receipt Date: 20130904
  Transmission Date: 20140515
  Serious: Yes (Other)
  Sender: FDA-Public Use
  Company Number: US-BAXTER-2013BAX034703

PATIENT
  Age: 12 Year
  Sex: Female

DRUGS (1)
  1. SEVOFLURANE, USP [Suspect]
     Indication: ANAESTHESIA
     Route: 065

REACTIONS (3)
  - Encephalopathy [Recovered/Resolved with Sequelae]
  - Coma [Recovered/Resolved]
  - Dystonia [Unknown]
